FAERS Safety Report 25396036 (Version 1)
Quarter: 2025Q2

REPORT INFORMATION
  Report Type: Spontaneous
  Country: US (occurrence: None)
  Receive Date: 20250603
  Receipt Date: 20250603
  Transmission Date: 20250717
  Serious: Yes (Disabling)
  Sender: FDA-CTU
  Company Number: None

PATIENT
  Age: 71 Year
  Sex: Male
  Weight: 81.55 kg

DRUGS (6)
  1. TIRZEPATIDE [Suspect]
     Active Substance: TIRZEPATIDE
     Indication: Optic ischaemic neuropathy
     Route: 058
     Dates: start: 20240913, end: 20250513
  2. aspirin 81 mg once daily [Concomitant]
  3. glyburide 5 mg daily as needed for blood glucose control [Concomitant]
  4. lisinopril/hydrochlorothiazide 20/12.5 mg - 1/2 tablet daily [Concomitant]
  5. metformin 1000 mg daily as needed for blood glucose control [Concomitant]
  6. primidone 50 mg daily [Concomitant]

REACTIONS (3)
  - Vision blurred [None]
  - Blindness unilateral [None]
  - Optic ischaemic neuropathy [None]

NARRATIVE: CASE EVENT DATE: 20250513
